FAERS Safety Report 6387984-X (Version None)
Quarter: 2009Q3

REPORT INFORMATION
  Report Type: 
  Country: None (occurrence: None)
  Receive Date: 20090930
  Receipt Date: 20090915
  Transmission Date: 20100115
  Serious: Yes (Other)
  Sender: FDA-Public Use
  Company Number: DSM-2009-01353

PATIENT
  Age: 72 Year
  Sex: Female
  Weight: 72 kg

DRUGS (1)
  1. SEVIKAR (OLMESARTAN MEDOXOMIL / AMLODIPINE BESILATE) (TABLET) [Suspect]
     Indication: ESSENTIAL HYPERTENSION
     Dosage: 20/5 MG (1 IN 1 D), ORAL
     Route: 048
     Dates: start: 20090123, end: 20090427

REACTIONS (1)
  - COUGH [None]
